FAERS Safety Report 12700541 (Version 1)
Quarter: 2016Q3

REPORT INFORMATION
  Report Type: Spontaneous
  Country: US (occurrence: US)
  Receive Date: 20160830
  Receipt Date: 20160830
  Transmission Date: 20161109
  Serious: No
  Sender: FDA-Public Use
  Company Number: US-ACTELION-A-US2016-141304

PATIENT
  Age: 72 Year
  Sex: Female

DRUGS (18)
  1. NIFEDIPINE. [Concomitant]
     Active Substance: NIFEDIPINE
  2. GLIPIZIDE. [Concomitant]
     Active Substance: GLIPIZIDE
  3. CRESTOR [Concomitant]
     Active Substance: ROSUVASTATIN CALCIUM
  4. SPIRONOLACTONE. [Concomitant]
     Active Substance: SPIRONOLACTONE
  5. ASPIRIN. [Concomitant]
     Active Substance: ASPIRIN
     Dosage: 81 UNK, UNK
  6. PROTONIX [Concomitant]
     Active Substance: PANTOPRAZOLE SODIUM
  7. SINGULAIR [Concomitant]
     Active Substance: MONTELUKAST SODIUM
  8. SILDENAFIL. [Concomitant]
     Active Substance: SILDENAFIL
  9. UPTRAVI [Suspect]
     Active Substance: SELEXIPAG
     Indication: PRODUCT USED FOR UNKNOWN INDICATION
     Dosage: 2400 UNK, UNK
     Route: 048
  10. LASIX [Concomitant]
     Active Substance: FUROSEMIDE
  11. METFORMIN [Concomitant]
     Active Substance: METFORMIN HYDROCHLORIDE
  12. CELEXA [Concomitant]
     Active Substance: CITALOPRAM HYDROBROMIDE
  13. PREDNISONE. [Concomitant]
     Active Substance: PREDNISONE
  14. ALBUTEROL. [Concomitant]
     Active Substance: ALBUTEROL
  15. FLONASE [Concomitant]
     Active Substance: FLUTICASONE PROPIONATE
  16. AMBRISENTAN [Suspect]
     Active Substance: AMBRISENTAN
     Indication: PULMONARY HYPERTENSION
     Dosage: 10 MG, UNK
     Route: 065
  17. RECLAST [Concomitant]
     Active Substance: ZOLEDRONIC ACID
  18. TRICOR [Concomitant]
     Active Substance: FENOFIBRATE

REACTIONS (4)
  - Arthralgia [Unknown]
  - Musculoskeletal pain [Unknown]
  - Back pain [Unknown]
  - Myalgia [Unknown]
